FAERS Safety Report 25644030 (Version 1)
Quarter: 2025Q3

REPORT INFORMATION
  Report Type: Spontaneous
  Country: MY (occurrence: MY)
  Receive Date: 20250805
  Receipt Date: 20250805
  Transmission Date: 20251020
  Serious: Yes (Other)
  Sender: RANBAXY
  Company Number: MY-SUN PHARMACEUTICAL INDUSTRIES LTD-2025R1-519196

PATIENT
  Age: 40 Year
  Sex: Female

DRUGS (1)
  1. DICLOFENAC POTASSIUM [Suspect]
     Active Substance: DICLOFENAC POTASSIUM
     Indication: Analgesic therapy
     Dosage: 50 MILLIGRAM, TID
     Route: 048

REACTIONS (5)
  - Dyspnoea [Recovering/Resolving]
  - Chest discomfort [Recovering/Resolving]
  - Urticaria [Recovering/Resolving]
  - Bronchospasm [Recovering/Resolving]
  - Wheezing [Recovering/Resolving]
